FAERS Safety Report 16302196 (Version 4)
Quarter: 2020Q4

REPORT INFORMATION
  Report Type: Other
  Country: CA (occurrence: CA)
  Receive Date: 20190512
  Receipt Date: 20201218
  Transmission Date: 20210113
  Serious: No
  Sender: FDA-Public Use
  Company Number: CA-ROCHE-2317199

PATIENT
  Age: 55 Year
  Sex: Female

DRUGS (3)
  1. OCREVUS [Suspect]
     Active Substance: OCRELIZUMAB
     Indication: RELAPSING-REMITTING MULTIPLE SCLEROSIS
     Dosage: 300 MG AT DAY 0 AND 14, THEN 600 MG EVERY 6 MONTH ;ONGOING: YES
     Route: 042
     Dates: start: 20180413
  2. DESLORATADINE. [Concomitant]
     Active Substance: DESLORATADINE
  3. CRANBERRY. [Concomitant]
     Active Substance: CRANBERRY

REACTIONS (4)
  - Influenza [Recovering/Resolving]
  - Fatigue [Recovering/Resolving]
  - Nasopharyngitis [Recovering/Resolving]
  - Sinusitis [Recovering/Resolving]

NARRATIVE: CASE EVENT DATE: 2019
